FAERS Safety Report 25554259 (Version 2)
Quarter: 2025Q3

REPORT INFORMATION
  Report Type: Spontaneous
  Country: KW (occurrence: KW)
  Receive Date: 20250715
  Receipt Date: 20250910
  Transmission Date: 20251021
  Serious: Yes (Hospitalization, Other)
  Sender: PFIZER
  Company Number: KW-PFIZER INC-PV202500083274

PATIENT
  Age: 50 Year
  Sex: Female

DRUGS (1)
  1. ZIRABEV [Suspect]
     Active Substance: BEVACIZUMAB-BVZR
     Indication: Ovarian cancer metastatic
     Dosage: 960 MG, EVERY 3 WEEKS
     Route: 042
     Dates: start: 202505, end: 202506

REACTIONS (1)
  - Pulmonary mass [Unknown]
